FAERS Safety Report 15460361 (Version 1)
Quarter: 2018Q4

REPORT INFORMATION
  Report Type: Spontaneous
  Country: US (occurrence: US)
  Receive Date: 20181001
  Receipt Date: 20181001
  Transmission Date: 20190204
  Serious: Yes (Hospitalization)
  Sender: FDA-Public Use
  Company Number: None

PATIENT
  Age: 48 Year
  Sex: Male

DRUGS (4)
  1. METHYLPRED [Concomitant]
     Active Substance: METHYLPREDNISOLONE
  2. CYCLOBENZAPR [Concomitant]
     Active Substance: CYCLOBENZAPRINE
  3. COSENTYX [Suspect]
     Active Substance: SECUKINUMAB
     Indication: PSORIASIS
  4. TALTZ [Concomitant]
     Active Substance: IXEKIZUMAB

REACTIONS (3)
  - Psoriasis [None]
  - Pain [None]
  - Arthritis [None]

NARRATIVE: CASE EVENT DATE: 20180928
